FAERS Safety Report 11033593 (Version 1)
Quarter: 2015Q2

REPORT INFORMATION
  Report Type: Spontaneous
  Country: US (occurrence: US)
  Receive Date: 20150415
  Receipt Date: 20150415
  Transmission Date: 20150821
  Serious: Yes (Other)
  Sender: FDA-Public Use
  Company Number: US-BAYER-2015-119569

PATIENT
  Age: 85 Year
  Sex: Female

DRUGS (1)
  1. MAGNEVIST [Suspect]
     Active Substance: GADOPENTETATE DIMEGLUMINE
     Indication: NUCLEAR MAGNETIC RESONANCE IMAGING BRAIN
     Dosage: 6 ML OUT OF 7.5ML VIAL, ONCE
     Dates: start: 20150408, end: 20150408

REACTIONS (4)
  - Cough [None]
  - Secretion discharge [None]
  - Dyspnoea [None]
  - Respiratory tract congestion [None]

NARRATIVE: CASE EVENT DATE: 20150408
